FAERS Safety Report 5380590-5 (Version None)
Quarter: 2007Q3

REPORT INFORMATION
  Report Type: 
  Country: None (occurrence: None)
  Receive Date: 20070706
  Receipt Date: 20070702
  Transmission Date: 20080115
  Serious: Yes (Death)
  Sender: FDA-Public Use
  Company Number: JP-ASTRAZENECA-2007AP03699

PATIENT
  Age: 26726 Day
  Sex: Male

DRUGS (4)
  1. CRESTOR [Suspect]
     Indication: HYPERCHOLESTEROLAEMIA
     Route: 048
     Dates: start: 20060530, end: 20060619
  2. CONIEL [Concomitant]
     Indication: HYPERTENSION
     Route: 048
     Dates: start: 19980909, end: 20060619
  3. WYTENS [Concomitant]
     Indication: HYPERTENSION
     Route: 048
     Dates: start: 19980909, end: 20060619
  4. BLOPRESS [Concomitant]
     Indication: HYPERTENSION
     Route: 048
     Dates: start: 19980909, end: 20060619

REACTIONS (1)
  - CEREBRAL INFARCTION [None]
